FAERS Safety Report 25903699 (Version 1)
Quarter: 2025Q4

REPORT INFORMATION
  Report Type: Spontaneous
  Country: US (occurrence: US)
  Receive Date: 20251010
  Receipt Date: 20251010
  Transmission Date: 20260118
  Serious: No
  Sender: GLAXOSMITHKLINE
  Company Number: US-GSK-US2025124738

PATIENT
  Sex: Male

DRUGS (2)
  1. TRELEGY ELLIPTA [Suspect]
     Active Substance: FLUTICASONE FUROATE\UMECLIDINIUM BROMIDE\VILANTEROL TRIFENATATE
     Indication: Chronic obstructive pulmonary disease
     Dosage: 100 MCG FLUTICASONE FUROATE, 62.5 MCG UMECLIDINIUM, AND 25 MCG VILANTEROL (100/62.5/25 MCG) PER ACTU
  2. ALBUTEROL SULFATE [Concomitant]
     Active Substance: ALBUTEROL SULFATE
     Indication: Product used for unknown indication
     Dosage: UNK

REACTIONS (4)
  - Tremor [Not Recovered/Not Resolved]
  - Product prescribing error [Unknown]
  - Product dispensing error [Unknown]
  - Intercepted product dispensing error [Unknown]
